FAERS Safety Report 8234247-3 (Version None)
Quarter: 2012Q1

REPORT INFORMATION
  Report Type: 
  Country: None (occurrence: None)
  Receive Date: 20120326
  Receipt Date: 20120319
  Transmission Date: 20120608
  Serious: Yes (Other)
  Sender: FDA-Public Use
  Company Number: JP-VERTEX PHARMACEUTICALS INC.-AE-2012-004099

PATIENT
  Age: 56 Year
  Sex: Female

DRUGS (2)
  1. TELAVIC (TELAPREVIR) [Suspect]
     Route: 048
     Dates: start: 20120305
  2. PEG-INTRON [Concomitant]
     Route: 051
     Dates: start: 20120305

REACTIONS (1)
  - DECREASED APPETITE [None]
